FAERS Safety Report 4889780-9 (Version None)
Quarter: 2006Q1

REPORT INFORMATION
  Report Type: 
  Country: None (occurrence: None)
  Receive Date: 20060124
  Receipt Date: 20050412
  Transmission Date: 20060701
  Serious: Yes (Hospitalization)
  Sender: FDA-Public Use
  Company Number: US-MERCK-0504USA02218

PATIENT
  Age: 54 Year
  Sex: Female
  Weight: 84 kg

DRUGS (11)
  1. VIOXX [Suspect]
     Indication: ARTHRITIS
     Route: 048
     Dates: start: 19990701, end: 20040401
  2. COREG [Concomitant]
     Route: 065
  3. CARTIA (DILTIAZEM HYDROCHLORIDE) [Concomitant]
     Route: 065
  4. LASIX [Concomitant]
     Route: 065
  5. DIOVAN [Concomitant]
     Route: 065
  6. POTASSIUM (UNSPECIFIED) [Concomitant]
     Route: 065
  7. PREMARIN [Concomitant]
     Route: 065
  8. NEXIUM [Concomitant]
     Route: 065
  9. BENADRYL [Concomitant]
     Route: 065
  10. GLUCOVANCE [Concomitant]
     Route: 065
  11. CLARINEX [Concomitant]
     Route: 065

REACTIONS (5)
  - ARTERIAL OCCLUSIVE DISEASE [None]
  - CHEST PAIN [None]
  - HYPERTENSION [None]
  - ISCHAEMIC STROKE [None]
  - SYNCOPE [None]
